FAERS Safety Report 21409588 (Version 1)
Quarter: 2022Q4

REPORT INFORMATION
  Report Type: Spontaneous
  Country: US (occurrence: None)
  Receive Date: 20221003
  Receipt Date: 20221003
  Transmission Date: 20230112
  Serious: Yes (Hospitalization)
  Sender: FDA-Public Use
  Company Number: None

PATIENT
  Age: 75 Year
  Sex: Male

DRUGS (1)
  1. BOTOX [Suspect]
     Active Substance: ONABOTULINUMTOXINA
     Indication: Migraine
     Dosage: INJECT 155 UNITS IN THE MUSCLE TO HEAD AND NECK REGION EVERY 3 MONTHS BY PHYSICIAN
     Dates: start: 20210506

REACTIONS (1)
  - Migraine [None]

NARRATIVE: CASE EVENT DATE: 20220526
